FAERS Safety Report 20732057 (Version 1)
Quarter: 2022Q2

REPORT INFORMATION
  Report Type: Spontaneous
  Country: FR (occurrence: FR)
  Receive Date: 20220420
  Receipt Date: 20220420
  Transmission Date: 20220721
  Serious: Yes (Hospitalization)
  Sender: FDA-Public Use
  Company Number: None

PATIENT
  Age: 60 Year
  Sex: Female
  Weight: 67 kg

DRUGS (8)
  1. ALIMTA [Suspect]
     Active Substance: PEMETREXED DISODIUM
     Indication: Lung adenocarcinoma
     Dosage: 500 MG/M? EN PERFUSION INTRAVEINEUSE  SUR 10 MINUTES
     Route: 041
     Dates: start: 20220224, end: 20220224
  2. KEYTRUDA [Suspect]
     Active Substance: PEMBROLIZUMAB
     Indication: Lung adenocarcinoma
     Dosage: 200 MG INTRAVENOUS PERFUSION FOR 30 MINUTES
     Route: 041
     Dates: start: 20220224, end: 20220224
  3. CARBOPLATIN [Suspect]
     Active Substance: CARBOPLATIN
     Indication: Lung adenocarcinoma
     Dosage: 640 MG INTRAVENOUS PERFUSION
     Route: 041
     Dates: start: 20220224, end: 20220224
  4. PREDNISONE [Concomitant]
     Active Substance: PREDNISONE
     Indication: Nausea
     Dosage: 80 MG PER DAY
     Route: 048
     Dates: start: 20220223, end: 20220225
  5. SOLU-MEDROL [Concomitant]
     Active Substance: METHYLPREDNISOLONE SODIUM SUCCINATE
     Indication: Nausea
     Dosage: 60 MG SUR 15 MINUTES
     Route: 041
     Dates: start: 20220224, end: 20220224
  6. ONDANSETRON [Concomitant]
     Active Substance: ONDANSETRON
     Indication: Nausea
     Dosage: 8 MG EN 15 MINUTES
     Route: 041
     Dates: start: 20220224, end: 20220224
  7. NEULASTA [Concomitant]
     Active Substance: PEGFILGRASTIM
     Indication: Neutropenia
     Dosage: 6 MG, SUBCUTANEOUS INJECTION, 1 DAY
     Route: 058
     Dates: start: 20220225, end: 20220225
  8. EMEND [Concomitant]
     Active Substance: APREPITANT
     Indication: Nausea
     Dosage: 125 MG, 1 DAY
     Route: 048
     Dates: start: 20220224, end: 20220224

REACTIONS (1)
  - Infusion related hypersensitivity reaction [Recovered/Resolved]

NARRATIVE: CASE EVENT DATE: 20220225
